FAERS Safety Report 4308970-7 (Version None)
Quarter: 2004Q1

REPORT INFORMATION
  Report Type: 
  Country: None (occurrence: None)
  Receive Date: 20040227
  Receipt Date: 20040220
  Transmission Date: 20041129
  Serious: Yes (Death, Other)
  Sender: FDA-Public Use
  Company Number: 2004-00729

PATIENT
  Sex: Male

DRUGS (1)
  1. QUININE (WATSON LABORATORIES) (QUININE SULFATE) [Suspect]
     Indication: MUSCLE CRAMP
     Dosage: 250 MG, DAILY, ORAL
     Route: 048

REACTIONS (1)
  - THROMBOCYTOPENIA [None]
